FAERS Safety Report 9396749 (Version 3)
Quarter: 2013Q4

REPORT INFORMATION
  Report Type: Report from Study
  Country: DE (occurrence: DE)
  Receive Date: 20130712
  Receipt Date: 20131107
  Transmission Date: 20140711
  Serious: Yes (Disabling, Other)
  Sender: FDA-Public Use
  Company Number: DE-009507513-1305DEU009021

PATIENT
  Age: 57 Year
  Sex: Female
  Weight: 76 kg

DRUGS (11)
  1. BOCEPREVIR [Suspect]
     Indication: CHRONIC HEPATITIS C
     Dosage: 4 DF, TID, TOTAL DAILY DOSE:2400
     Route: 048
     Dates: start: 20120702, end: 20130506
  2. PEGINTRON [Suspect]
     Indication: CHRONIC HEPATITIS C
     Dosage: 100 MICROGRAM, QW
     Route: 058
     Dates: start: 20121001, end: 20130506
  3. PEGINTRON [Suspect]
     Dosage: 120 MICROGRAM, UNK
     Route: 058
     Dates: start: 20120604, end: 2012
  4. REBETOL [Suspect]
     Indication: CHRONIC HEPATITIS C
     Dosage: 400 MG, DAILY
     Route: 048
     Dates: start: 20121029, end: 20130506
  5. REBETOL [Suspect]
     Dosage: 1200 MG, DAILY
     Route: 048
     Dates: start: 20120604, end: 2012
  6. REBETOL [Suspect]
     Dosage: 800 MG, DAILY
     Route: 048
     Dates: start: 20120627, end: 2012
  7. REBETOL [Suspect]
     Dosage: 400 MG, DAILY
     Route: 048
     Dates: start: 20120731, end: 2012
  8. REBETOL [Suspect]
     Dosage: 800 MG, DAILY
     Route: 048
     Dates: start: 20120903, end: 2012
  9. REBETOL [Suspect]
     Dosage: 600 MG, DAILY
     Route: 048
     Dates: start: 20121001, end: 2012
  10. REBETOL [Suspect]
     Dosage: 400 MG, QD
     Route: 048
     Dates: start: 20121029, end: 20130506
  11. VIGIL [Concomitant]
     Indication: ASTHENIA
     Dosage: 100 MG, QD. FREQUENCY:1-0-0
     Route: 048
     Dates: start: 20120903, end: 20120924

REACTIONS (3)
  - Drug ineffective [Not Recovered/Not Resolved]
  - Neutropenia [Recovered/Resolved]
  - Anaemia [Recovered/Resolved]
